FAERS Safety Report 18183835 (Version 2)
Quarter: 2021Q2

REPORT INFORMATION
  Report Type: Spontaneous
  Country: US (occurrence: US)
  Receive Date: 20200823
  Receipt Date: 20210420
  Transmission Date: 20210717
  Serious: Yes (Other)
  Sender: FDA-Public Use
  Company Number: US-SA-2020SA221843

PATIENT
  Age: 51 Year
  Sex: Male

DRUGS (1)
  1. ZANTAC [Suspect]
     Active Substance: RANITIDINE HYDROCHLORIDE
     Indication: DYSPEPSIA
     Dosage: 150 MG, QD
     Dates: start: 199901, end: 201901

REACTIONS (8)
  - Testis cancer [Unknown]
  - Lung carcinoma cell type unspecified stage IV [Unknown]
  - Skin cancer [Unknown]
  - Gastric cancer stage IV [Unknown]
  - Lip and/or oral cavity cancer [Unknown]
  - Oesophageal carcinoma [Unknown]
  - Tongue carcinoma stage IV [Unknown]
  - Throat cancer [Unknown]

NARRATIVE: CASE EVENT DATE: 20150101
